FAERS Safety Report 24084006 (Version 1)
Quarter: 2024Q3

REPORT INFORMATION
  Report Type: Spontaneous
  Country: US (occurrence: None)
  Receive Date: 20240711
  Receipt Date: 20240711
  Transmission Date: 20241016
  Serious: Yes (Other)
  Sender: Public
  Company Number: None

PATIENT
  Age: 56 Year
  Sex: Female
  Weight: 83.25 kg

DRUGS (1)
  1. CABENUVA [Suspect]
     Active Substance: CABOTEGRAVIR\RILPIVIRINE
     Indication: HIV infection
     Dosage: 6 ML EVERY MONTH INTRAMUSCULAR
     Route: 030
     Dates: start: 20240524, end: 20240628

REACTIONS (2)
  - Renal disorder [None]
  - Adverse event [None]

NARRATIVE: CASE EVENT DATE: 20240524
